FAERS Safety Report 7459474-4 (Version None)
Quarter: 2011Q2

REPORT INFORMATION
  Report Type: 
  Country: None (occurrence: None)
  Receive Date: 20110505
  Receipt Date: 20110429
  Transmission Date: 20111010
  Serious: Yes (Other)
  Sender: FDA-Public Use
  Company Number: RU-ABBOTT-11P-251-0722369-00

PATIENT
  Age: 14 Year
  Sex: Female

DRUGS (3)
  1. DEPAKINE ENTERIC [Suspect]
     Indication: EPILEPSY
     Dosage: 150 MG DAILY
     Route: 048
     Dates: start: 20110315, end: 20110315
  2. BISACODYL [Concomitant]
     Indication: CONSTIPATION
     Route: 054
  3. DEPAKINE ENTERIC [Suspect]
     Dosage: 450 MG DAILY
     Route: 048
     Dates: start: 20060101

REACTIONS (4)
  - PRODUCT COUNTERFEIT [None]
  - HYPOTENSION [None]
  - PRESYNCOPE [None]
  - ASTHENIA [None]
